FAERS Safety Report 22173732 (Version 9)
Quarter: 2023Q4

REPORT INFORMATION
  Report Type: Spontaneous
  Country: FR (occurrence: FR)
  Receive Date: 20230404
  Receipt Date: 20231211
  Transmission Date: 20240110
  Serious: Yes (Other)
  Sender: FDA-Public Use
  Company Number: FR-AstraZeneca-2023A063808

PATIENT
  Age: 68 Year
  Sex: Female

DRUGS (17)
  1. IMATINIB [Interacting]
     Active Substance: IMATINIB
     Indication: Gastrointestinal stromal tumour
     Dosage: 400 MILLIGRAM, QD
     Route: 065
     Dates: end: 200804
  2. IMATINIB [Interacting]
     Active Substance: IMATINIB
     Indication: Non-small cell lung cancer
     Dosage: 400 MILLIGRAM, QD
     Route: 065
     Dates: end: 202009
  3. IMATINIB [Interacting]
     Active Substance: IMATINIB
     Indication: Lung adenocarcinoma
     Dosage: 200 MILLIGRAM, QD
     Route: 065
     Dates: start: 202104, end: 202104
  4. IMATINIB [Interacting]
     Active Substance: IMATINIB
     Dosage: IMATINIB WAS INCREASED TO 300 MG
     Route: 065
     Dates: start: 202104, end: 202110
  5. IMATINIB [Interacting]
     Active Substance: IMATINIB
     Dosage: THEN DECREASING THE DOSAGE TO 100MG/DAY
     Route: 065
     Dates: start: 202201, end: 202203
  6. IMATINIB [Interacting]
     Active Substance: IMATINIB
     Dosage: 100 MILLIGRAM, QD
     Route: 065
     Dates: start: 202203, end: 202206
  7. IMATINIB [Interacting]
     Active Substance: IMATINIB
     Dosage: 200 MILLIGRAM, QD
     Route: 065
     Dates: start: 202206
  8. CRIZOTINIB [Interacting]
     Active Substance: CRIZOTINIB
     Indication: Lung adenocarcinoma
     Dosage: 250 MILLIGRAM, QD
     Route: 065
     Dates: start: 202110
  9. CRIZOTINIB [Interacting]
     Active Substance: CRIZOTINIB
     Indication: Drug resistance
     Dosage: DOSE DECREASED TO 200 MG/DAY. IN JAN-2022
     Route: 065
     Dates: start: 202111
  10. CRIZOTINIB [Interacting]
     Active Substance: CRIZOTINIB
     Indication: Non-small cell lung cancer
     Dosage: 250 MILLIGRAM, QD (DOSE INCREASE)
     Route: 065
     Dates: start: 202201
  11. CRIZOTINIB [Interacting]
     Active Substance: CRIZOTINIB
     Dosage: 250 MILLIGRAM, QD
     Route: 065
     Dates: start: 202203, end: 202206
  12. CRIZOTINIB [Interacting]
     Active Substance: CRIZOTINIB
     Dosage: 200 MILLIGRAM, QD
     Route: 065
     Dates: end: 202203
  13. OSIMERTINIB [Interacting]
     Active Substance: OSIMERTINIB
     Indication: Lung adenocarcinoma
     Dosage: 80 MILLIGRAM, QD
     Route: 048
     Dates: start: 202009
  14. OSIMERTINIB [Interacting]
     Active Substance: OSIMERTINIB
     Indication: Gastrointestinal stromal tumour
     Dosage: 40 MILLIGRAM, QD
     Route: 048
     Dates: start: 202009
  15. OSIMERTINIB [Interacting]
     Active Substance: OSIMERTINIB
     Indication: Drug resistance
     Dosage: 300 MILLIGRAM, QD
     Route: 065
     Dates: start: 202104
  16. OSIMERTINIB [Interacting]
     Active Substance: OSIMERTINIB
     Dosage: 40 MILLIGRAM, QD (DOSE REDUCTION)
     Route: 065
     Dates: start: 202104
  17. AFATINIB [Concomitant]
     Active Substance: AFATINIB
     Indication: Lung adenocarcinoma
     Dosage: UNK
     Route: 065
     Dates: start: 2020, end: 202009

REACTIONS (17)
  - Drug interaction [Unknown]
  - Acute kidney injury [Recovered/Resolved]
  - Renal failure [Recovering/Resolving]
  - Diarrhoea [Recovered/Resolved]
  - Blood creatine phosphokinase increased [Recovered/Resolved]
  - Hepatic cytolysis [Recovering/Resolving]
  - Alanine aminotransferase increased [Recovered/Resolved]
  - Drug level increased [Recovered/Resolved]
  - Lung adenocarcinoma [Unknown]
  - Gastrointestinal stromal tumour [Unknown]
  - Neoplasm progression [Unknown]
  - Malignant neoplasm progression [Unknown]
  - Drug ineffective [Unknown]
  - Drug resistance [Unknown]
  - Drug resistance mutation [Unknown]
  - Off label use [Unknown]
  - Overdose [Unknown]

NARRATIVE: CASE EVENT DATE: 20200101
